FAERS Safety Report 7287608-3 (Version None)
Quarter: 2011Q1

REPORT INFORMATION
  Report Type: 
  Country: None (occurrence: None)
  Receive Date: 20110211
  Receipt Date: 20110202
  Transmission Date: 20110831
  Serious: Yes (Other)
  Sender: FDA-Public Use
  Company Number: US-JNJFOC-20100706141

PATIENT
  Sex: Female

DRUGS (5)
  1. LEVAQUIN [Suspect]
     Indication: INFECTION
     Route: 048
  2. STEROIDS NOS [Suspect]
     Indication: SKIN LESION
     Route: 065
  3. LEVAQUIN [Suspect]
     Indication: OSTEOMYELITIS
     Route: 048
  4. LEVAQUIN [Suspect]
     Indication: SKIN LESION
     Route: 048
  5. LEVAQUIN [Suspect]
     Indication: PNEUMONIA
     Route: 048

REACTIONS (4)
  - OSTEOARTHRITIS [None]
  - JOINT INJURY [None]
  - MUSCLE INJURY [None]
  - ROTATOR CUFF SYNDROME [None]
